FAERS Safety Report 9973085 (Version 2)
Quarter: 2019Q4

REPORT INFORMATION
  Report Type: Spontaneous
  Country: US (occurrence: US)
  Receive Date: 20140306
  Receipt Date: 20191105
  Transmission Date: 20200122
  Serious: Yes (Other)
  Sender: FDA-Public Use
  Company Number: US-PFIZER INC-2014062844

PATIENT
  Age: 40 Year

DRUGS (3)
  1. LIPITOR [Suspect]
     Active Substance: ATORVASTATIN CALCIUM
     Dosage: 80 MG, UNK
     Dates: start: 2000
  2. LIPITOR [Suspect]
     Active Substance: ATORVASTATIN CALCIUM
     Indication: BLOOD CHOLESTEROL INCREASED
     Dosage: UNK
     Route: 048
  3. TRICOR [Suspect]
     Active Substance: FENOFIBRATE
     Dosage: 145 MG, UNK

REACTIONS (2)
  - Type 2 diabetes mellitus [Unknown]
  - Angiopathy [Unknown]

NARRATIVE: CASE EVENT DATE: 2000
